FAERS Safety Report 10372476 (Version 4)
Quarter: 2015Q1

REPORT INFORMATION
  Report Type: Report from Study
  Country: US (occurrence: US)
  Receive Date: 20140808
  Receipt Date: 20150309
  Transmission Date: 20150720
  Serious: Yes (Hospitalization)
  Sender: FDA-Public Use
  Company Number: US-GILEAD-2014-0111373

PATIENT
  Age: 64 Year
  Sex: Female

DRUGS (6)
  1. AMBRISENTAN [Suspect]
     Active Substance: AMBRISENTAN
     Indication: PULMONARY HYPERTENSION
     Dosage: 10 MG, QD
     Route: 065
     Dates: start: 20100714
  2. AMBRISENTAN [Suspect]
     Active Substance: AMBRISENTAN
     Indication: HEART DISEASE CONGENITAL
  3. TYVASO [Concomitant]
     Active Substance: TREPROSTINIL
  4. ADEMPAS [Concomitant]
     Active Substance: RIOCIGUAT
  5. ADCIRCA [Concomitant]
     Active Substance: TADALAFIL
  6. REMODULIN [Suspect]
     Active Substance: TREPROSTINIL
     Indication: PRODUCT USED FOR UNKNOWN INDICATION
     Dosage: 16 NG/KG, Q1MINUTE
     Route: 058

REACTIONS (7)
  - Therapy change [Unknown]
  - Headache [Not Recovered/Not Resolved]
  - Nausea [Unknown]
  - Hot flush [Unknown]
  - Pain in extremity [Not Recovered/Not Resolved]
  - Neck pain [Not Recovered/Not Resolved]
  - Frustration [Not Recovered/Not Resolved]

NARRATIVE: CASE EVENT DATE: 20140805
